FAERS Safety Report 16712242 (Version 2)
Quarter: 2019Q3

REPORT INFORMATION
  Report Type: Spontaneous
  Country: GB (occurrence: GB)
  Receive Date: 20190816
  Receipt Date: 20190906
  Transmission Date: 20191004
  Serious: Yes (Other)
  Sender: FDA-Public Use
  Company Number: GB-BAUSCH-BL-2019-023169

PATIENT
  Age: 56 Year
  Sex: Female

DRUGS (11)
  1. VINCRISTINE [Suspect]
     Active Substance: VINCRISTINE
     Indication: POST TRANSPLANT LYMPHOPROLIFERATIVE DISORDER
     Dosage: FOUR CYCLES OF R-CHOP THREE WEEKLY
     Route: 065
     Dates: start: 2015, end: 2015
  2. PREDNISOLONE. [Suspect]
     Active Substance: PREDNISOLONE
     Indication: POST TRANSPLANT LYMPHOPROLIFERATIVE DISORDER
     Route: 065
     Dates: start: 2014, end: 2015
  3. MYCOPHENOLATE MOFETIL. [Suspect]
     Active Substance: MYCOPHENOLATE MOFETIL
     Dosage: DOSE REDUCED.
     Route: 065
  4. PREDNISOLONE. [Suspect]
     Active Substance: PREDNISOLONE
     Dosage: DOSE REDUCED
     Route: 065
  5. MYCOPHENOLATE MOFETIL. [Suspect]
     Active Substance: MYCOPHENOLATE MOFETIL
     Indication: POST TRANSPLANT LYMPHOPROLIFERATIVE DISORDER
     Dosage: RELATIVELY MODEST DOSES OF IMMUNOSUPPRESSION; FOUR CYCLES OF R-CHOP THREE WEEKLY
     Route: 065
     Dates: start: 2015, end: 2015
  6. DOXORUBICIN [Suspect]
     Active Substance: DOXORUBICIN
     Indication: POST TRANSPLANT LYMPHOPROLIFERATIVE DISORDER
     Dosage: FOUR CYCLES OF R-CHOP THREE WEEKLY
     Route: 065
     Dates: start: 2015, end: 2015
  7. RITUXIMAB. [Suspect]
     Active Substance: RITUXIMAB
     Indication: POST TRANSPLANT LYMPHOPROLIFERATIVE DISORDER
     Dosage: FOUR CYCLES OF R-CHOP THREE WEEKLY
     Route: 065
     Dates: start: 2015, end: 2015
  8. PREDNISOLONE. [Suspect]
     Active Substance: PREDNISOLONE
     Indication: IMMUNOSUPPRESSANT DRUG THERAPY
     Dosage: RELATIVELY MODEST DOSES OF IMMUNOSUPPRESSION, WEANED
     Route: 065
     Dates: start: 2015, end: 2015
  9. CYCLOPHOSPHAMIDE. [Suspect]
     Active Substance: CYCLOPHOSPHAMIDE
     Indication: POST TRANSPLANT LYMPHOPROLIFERATIVE DISORDER
     Dosage: FOUR CYCLES OF R-CHOP THREE WEEKLY
     Route: 065
     Dates: start: 2015, end: 2015
  10. MYCOPHENOLATE MOFETIL. [Suspect]
     Active Substance: MYCOPHENOLATE MOFETIL
     Indication: IMMUNOSUPPRESSANT DRUG THERAPY
     Route: 065
     Dates: start: 2014, end: 2015
  11. VALGANCICLOVIR. [Concomitant]
     Active Substance: VALGANCICLOVIR
     Indication: CYTOMEGALOVIRUS INFECTION
     Route: 048
     Dates: start: 2015

REACTIONS (1)
  - Therapy non-responder [Unknown]
